FAERS Safety Report 15330453 (Version 1)
Quarter: 2018Q3

REPORT INFORMATION
  Report Type: Spontaneous
  Country: US (occurrence: US)
  Receive Date: 20180824
  Receipt Date: 20180824
  Transmission Date: 20181010
  Serious: Yes (Hospitalization, Disabling, Other)
  Sender: FDA-Public Use
  Company Number: None

PATIENT
  Age: 82 Year
  Sex: Female
  Weight: 70.3 kg

DRUGS (3)
  1. HEPARIN [Suspect]
     Active Substance: HEPARIN SODIUM
     Indication: ANTICOAGULANT THERAPY
     Route: 058
     Dates: start: 20180803, end: 20180806
  2. BUPIVACAINE 0.125% (EPIDURAL) [Concomitant]
     Dates: start: 20180802, end: 20180806
  3. HYDROMORPHONE (EPIDURAL) [Concomitant]
     Dates: start: 20180802, end: 20180806

REACTIONS (5)
  - Pain [None]
  - Diplegia [None]
  - Muscular weakness [None]
  - Extradural haematoma [None]
  - Cough [None]

NARRATIVE: CASE EVENT DATE: 20180806
